FAERS Safety Report 8779592 (Version 1)
Quarter: 2012Q4

REPORT INFORMATION
  Report Type: 
  Country: DE (occurrence: DE)
  Receive Date: 20120912
  Receipt Date: 20120912
  Transmission Date: 20130627
  Serious: Yes (Other)
  Sender: FDA-Public Use
  Company Number: DE-AMGEN-DEUSP2012057152

PATIENT

DRUGS (2)
  1. NPLATE [Suspect]
     Indication: MYELODYSPLASTIC SYNDROME
     Dosage: 500 mug, qwk
     Route: 058
  2. NPLATE [Suspect]
     Indication: THROMBOCYTOPENIA

REACTIONS (2)
  - Chloroma [Unknown]
  - Thrombocytopenia [Unknown]
